FAERS Safety Report 17942577 (Version 2)
Quarter: 2020Q3

REPORT INFORMATION
  Report Type: Spontaneous
  Country: AR (occurrence: AR)
  Receive Date: 20200625
  Receipt Date: 20200807
  Transmission Date: 20201103
  Serious: Yes (Other)
  Sender: FDA-Public Use
  Company Number: AR-PFIZER INC-2020244847

PATIENT
  Age: 65 Year
  Sex: Female

DRUGS (1)
  1. XELJANZ XR [Suspect]
     Active Substance: TOFACITINIB CITRATE
     Indication: RHEUMATOID ARTHRITIS
     Dosage: 11 MG, 1X/DAY
     Dates: start: 20190301

REACTIONS (6)
  - Cerebrovascular accident [Unknown]
  - Drug hypersensitivity [Unknown]
  - Hypertension [Unknown]
  - Thrombosis [Unknown]
  - Headache [Unknown]
  - Mental disorder [Unknown]
